FAERS Safety Report 5873010-5 (Version None)
Quarter: 2008Q3

REPORT INFORMATION
  Report Type: 
  Country: None (occurrence: None)
  Receive Date: 20080903
  Receipt Date: 20080822
  Transmission Date: 20090109
  Serious: Yes (Hospitalization)
  Sender: FDA-Public Use
  Company Number: 238009J08USA

PATIENT
  Age: 35 Year
  Sex: Male
  Weight: 77.1115 kg

DRUGS (5)
  1. REBIF [Suspect]
     Indication: MULTIPLE SCLEROSIS
     Dosage: 44 MCG, 3 IN 1 WEEKS, SUBCUTANEOUS
     Route: 058
     Dates: start: 20080101, end: 20080801
  2. OXYCONTIN (OXYCONTIN HYDROCHLORIDE) [Concomitant]
  3. DARVOCET [Concomitant]
  4. PAXIL [Concomitant]
  5. CALTRATE (CALCIUM CARBONATE) [Concomitant]

REACTIONS (8)
  - BIPOLAR DISORDER [None]
  - DYSURIA [None]
  - MONOPLEGIA [None]
  - MULTIPLE SCLEROSIS RELAPSE [None]
  - NERVOUS SYSTEM DISORDER [None]
  - NUCLEAR MAGNETIC RESONANCE IMAGING BRAIN ABNORMAL [None]
  - SPINAL DISORDER [None]
  - THROMBOSIS [None]
